FAERS Safety Report 7860302-3 (Version None)
Quarter: 2011Q4

REPORT INFORMATION
  Report Type: 
  Country: None (occurrence: None)
  Receive Date: 20111027
  Receipt Date: 20091122
  Transmission Date: 20120403
  Serious: Yes (Death, Hospitalization, Other)
  Sender: FDA-Public Use
  Company Number: US-BAYER-200940316NA

PATIENT
  Age: 75 Year
  Sex: Female
  Weight: 153 kg

DRUGS (28)
  1. TRASYLOL [Suspect]
     Indication: TRICUSPID VALVE REPAIR
  2. LASIX [Concomitant]
     Dosage: 40 MG, BID
     Route: 048
  3. ACETYLSALICYLIC ACID SRT [Concomitant]
     Dosage: 81 MG, UNK
     Route: 048
  4. LOPRESSOR [Concomitant]
     Dosage: 50 MG, UNK
     Route: 048
  5. PROPOFOL [Concomitant]
     Dosage: 527.44 MG, UNK
     Route: 042
     Dates: start: 20030530
  6. TRASYLOL [Suspect]
     Indication: MITRAL VALVE REPAIR
     Dosage: 1ML INITIAL TEST DOSE FOLLOWED BY INFUSION TOTAL 8.1343 MILLIUNITS
     Route: 042
     Dates: start: 20030530, end: 20030530
  7. CORDARONE [Concomitant]
     Dosage: 200 MG, UNK
     Route: 048
  8. EPINEPHRINE [Concomitant]
     Dosage: 319.24 UG
     Route: 042
     Dates: start: 20030530
  9. ETOMIDATE [Concomitant]
     Dosage: 14 MG, UNK
     Route: 042
     Dates: start: 20030530
  10. SUCCINYLCHOLINE CHLORIDE [Concomitant]
     Dosage: 110 MG, UNK
     Route: 042
     Dates: start: 20030530
  11. SYNTHROID [Concomitant]
     Dosage: 75 MICROGRAMS PER DAY
     Route: 048
  12. COUMADIN [Concomitant]
     Dosage: 2.5 MG, UNK
     Route: 048
  13. LOPRESSOR [Concomitant]
     Dosage: 50 MG, BID
     Route: 048
  14. PERSANTINE [Concomitant]
     Dosage: 75 MG, TID
     Route: 048
  15. NOREPINEPHRINE BITARTRATE [Concomitant]
     Dosage: 55.25 UG
     Route: 042
     Dates: start: 20030530
  16. VASOPRESSIN [Concomitant]
     Dosage: 1 U, UNK
     Route: 042
     Dates: start: 20030530
  17. FENTANYL-100 [Concomitant]
     Dosage: 150 MG, UNK
  18. PHENYLEPHRINE HCL [Concomitant]
     Dosage: 28.162 MG, UNK
     Route: 042
     Dates: start: 20030530
  19. DOBUTAMINE HCL [Concomitant]
     Dosage: UNK
     Route: 042
  20. FUROSEMIDE [Concomitant]
     Dosage: 20 MG, UNK
     Route: 042
     Dates: start: 20030530
  21. OMNIPAQUE 140 [Concomitant]
     Indication: CATHETERISATION CARDIAC
     Dosage: 133 CC
  22. AMITRIPTYLINE HCL [Concomitant]
     Dosage: 10 MG, UNK
     Route: 048
  23. HEPARIN [Concomitant]
     Dosage: 21 KG/UNIT
     Route: 042
     Dates: start: 20030530
  24. PROTAMINE SULFATE [Concomitant]
     Dosage: 300 MG, UNK
     Route: 042
     Dates: start: 20030530
  25. DOPAMINE HCL [Concomitant]
     Dosage: 44.589 MG, UNK
     Route: 042
     Dates: start: 20030530
  26. PRIMACOR [Concomitant]
     Dosage: 3.5 MG, UNK
     Route: 042
     Dates: start: 20030530
  27. AMIODARONE HCL [Concomitant]
     Dosage: UNK
     Route: 042
     Dates: start: 20030530
  28. MIDAZOLAM HCL [Concomitant]
     Dosage: 6 MG, UNK
     Route: 042
     Dates: start: 20030530

REACTIONS (14)
  - EMOTIONAL DISTRESS [None]
  - FEAR [None]
  - UNEVALUABLE EVENT [None]
  - RENAL INJURY [None]
  - PAIN [None]
  - INJURY [None]
  - DEATH [None]
  - RENAL FAILURE [None]
  - MENTAL DISORDER [None]
  - ANXIETY [None]
  - MULTI-ORGAN FAILURE [None]
  - RENAL IMPAIRMENT [None]
  - STRESS [None]
  - ANHEDONIA [None]
